APPROVED DRUG PRODUCT: METHOCARBAMOL
Active Ingredient: METHOCARBAMOL
Strength: 1GM/10ML (100MG/ML)
Dosage Form/Route: SOLUTION;IM-IV
Application: A215065 | Product #001
Applicant: BAXTER HEALTHCARE CORP
Approved: Jul 14, 2022 | RLD: No | RS: No | Type: DISCN